FAERS Safety Report 12300812 (Version 4)
Quarter: 2017Q2

REPORT INFORMATION
  Report Type: Report from Study
  Country: IE (occurrence: IE)
  Receive Date: 20160425
  Receipt Date: 20170424
  Transmission Date: 20170830
  Serious: Yes (Death, Hospitalization, Other)
  Sender: FDA-Public Use
  Company Number: IE-VERTEX PHARMACEUTICALS-2016-002600

PATIENT
  Age: 51 Year
  Sex: Male

DRUGS (15)
  1. INSULIN [Concomitant]
     Active Substance: INSULIN NOS
  2. TEICOPLANIN [Concomitant]
     Active Substance: TEICOPLANIN
  3. COLOMYCIN [Concomitant]
     Active Substance: COLISTIN
     Route: 055
  4. PANTOPRAZOLE [Concomitant]
     Active Substance: PANTOPRAZOLE
  5. SALBUTEROL [Concomitant]
  6. COLOMYCIN [Concomitant]
     Active Substance: COLISTIN
     Route: 042
  7. MORPHINE [Concomitant]
     Active Substance: MORPHINE
     Route: 058
  8. AMLODIPINE [Concomitant]
     Active Substance: AMLODIPINE BESYLATE
  9. AZITHROMYCIN ANHYDROUS. [Concomitant]
     Active Substance: AZITHROMYCIN ANHYDROUS
  10. ORKAMBI [Suspect]
     Active Substance: IVACAFTOR\LUMACAFTOR
     Indication: CYSTIC FIBROSIS
     Dosage: 2 DF, BID
     Route: 048
     Dates: start: 20160303
  11. HYOSCINE [Concomitant]
     Active Substance: SCOPOLAMINE
     Route: 058
  12. MEROPENEM. [Concomitant]
     Active Substance: MEROPENEM
  13. MIDAZOLAM [Concomitant]
     Active Substance: MIDAZOLAM HYDROCHLORIDE
     Route: 058
  14. DEOXYRIBONUCLEASE HUMAN [Concomitant]
  15. HYDROCORTISONE. [Concomitant]
     Active Substance: HYDROCORTISONE

REACTIONS (3)
  - Infective pulmonary exacerbation of cystic fibrosis [Unknown]
  - Influenza [Unknown]
  - Acute respiratory failure [Fatal]

NARRATIVE: CASE EVENT DATE: 2016
